FAERS Safety Report 10041870 (Version 1)
Quarter: 2014Q1

REPORT INFORMATION
  Report Type: Spontaneous
  Country: US (occurrence: US)
  Receive Date: 20140327
  Receipt Date: 20140327
  Transmission Date: 20141002
  Serious: Yes (Other)
  Sender: FDA-Public Use
  Company Number: US-FRI-1000065759

PATIENT
  Sex: Female

DRUGS (11)
  1. FETZIMA [Suspect]
     Indication: DEPRESSION
     Dosage: 20MG
     Route: 048
     Dates: start: 20140320
  2. FETZIMA [Suspect]
     Indication: PAIN
  3. ATROVENT [Concomitant]
     Indication: ASTHMA
  4. ATROVENT [Concomitant]
     Indication: CHRONIC OBSTRUCTIVE PULMONARY DISEASE
  5. ALBUTEROL [Concomitant]
     Dosage: AS NEEDED
  6. TESSALON [Concomitant]
     Dosage: AS NEEDED
  7. ASPIRIN [Concomitant]
     Dosage: 325MG NIGHTLY
  8. METFORMIN [Concomitant]
     Indication: DIABETES MELLITUS
     Dosage: 2000MG
  9. LISINOPRIL [Concomitant]
  10. TRIAMTERENE [Concomitant]
  11. HYDROCHLOROTHIAZIDE [Concomitant]

REACTIONS (3)
  - Haemoptysis [Unknown]
  - Neuralgia [Unknown]
  - Off label use [Unknown]
